FAERS Safety Report 10935581 (Version 1)
Quarter: 2015Q1

REPORT INFORMATION
  Report Type: Spontaneous
  Country: US (occurrence: US)
  Receive Date: 20150320
  Receipt Date: 20150320
  Transmission Date: 20150721
  Serious: Yes (Other)
  Sender: FDA-Public Use
  Company Number: US-AMGEN-USASP2015025982

PATIENT
  Sex: Female

DRUGS (1)
  1. ENBREL [Suspect]
     Active Substance: ETANERCEPT
     Indication: PSORIASIS
     Dosage: UNK
     Route: 065
     Dates: start: 201502

REACTIONS (8)
  - Injection site reaction [Unknown]
  - Injection site erythema [Unknown]
  - Injection site discolouration [Unknown]
  - Injection site swelling [Unknown]
  - Psoriatic arthropathy [Unknown]
  - Guttate psoriasis [Unknown]
  - Injection site discomfort [Unknown]
  - Injection site pain [Unknown]

NARRATIVE: CASE EVENT DATE: 2015
